FAERS Safety Report 6890435-X (Version None)
Quarter: 2010Q3

REPORT INFORMATION
  Report Type: 
  Country: None (occurrence: None)
  Receive Date: 20100731
  Receipt Date: 20081028
  Transmission Date: 20110219
  Serious: Yes (Other)
  Sender: FDA-Public Use
  Company Number: US-PFIZER INC-2008061675

PATIENT
  Sex: Female
  Weight: 62.1 kg

DRUGS (1)
  1. LIPITOR [Suspect]
     Indication: HYPERCHOLESTEROLAEMIA
     Dosage: AT BEDTIME
     Dates: start: 20080301

REACTIONS (1)
  - AMNESIA [None]
